FAERS Safety Report 8798558 (Version 2)
Quarter: 2013Q3

REPORT INFORMATION
  Report Type: Report from Study
  Country: JP (occurrence: JP)
  Receive Date: 20120920
  Receipt Date: 20130911
  Transmission Date: 20140515
  Serious: Yes (Other)
  Sender: FDA-Public Use
  Company Number: JP-VERTEX PHARMACEUTICAL INC.-2012-021510

PATIENT
  Age: 57 Year
  Sex: Male

DRUGS (17)
  1. VX-950 (TELAPREVIR) [Suspect]
     Indication: CHRONIC HEPATITIS C
     Dosage: 2250 MG, QD
     Route: 048
     Dates: start: 20120530, end: 20120704
  2. VX-950 (TELAPREVIR) [Suspect]
     Dosage: 1500 MG, QD
     Route: 048
     Dates: start: 20120705, end: 20120822
  3. RIBAVIRIN [Suspect]
     Indication: CHRONIC HEPATITIS C
     Dosage: 800 MG, QD
     Route: 048
     Dates: start: 20120530, end: 20120613
  4. RIBAVIRIN [Suspect]
     Dosage: 400 MG, QD
     Route: 048
     Dates: start: 20120614, end: 20120905
  5. RIBAVIRIN [Suspect]
     Dosage: 600 MG, QD
     Route: 048
     Dates: start: 20120906, end: 20121114
  6. PEGINTERFERON ALFA-2B [Suspect]
     Indication: CHRONIC HEPATITIS C
     Dosage: 1.4 ?G/KG, QW
     Route: 058
     Dates: start: 20120530
  7. PEGINTERFERON ALFA-2B [Suspect]
     Dosage: 1.5 ?G/KG, QW
     Route: 058
     Dates: end: 20120725
  8. PEGINTERFERON ALFA-2B [Suspect]
     Dosage: 1.1 ?G/KG, QW
     Route: 058
     Dates: start: 20120726, end: 20121108
  9. NU-LOTAN [Concomitant]
     Dosage: 50 MG, QD
     Route: 048
     Dates: end: 20120614
  10. LOXONIN [Concomitant]
     Dosage: 60 MG/DAY, PRN
     Route: 048
  11. GLACTIV [Concomitant]
     Dosage: 50 MG, QD
     Route: 048
     Dates: end: 20120615
  12. EPADEL-S [Concomitant]
     Dosage: 1800 MG, QD
     Route: 048
     Dates: start: 20120530, end: 20121114
  13. FEBURIC [Concomitant]
     Dosage: 20 MG, QD
     Route: 048
     Dates: start: 20120530, end: 20120620
  14. FEBURIC [Concomitant]
     Dosage: 40 MG, QD
     Route: 048
     Dates: start: 20120621, end: 20120627
  15. FEBURIC [Concomitant]
     Dosage: 60 MG, QD
     Route: 048
     Dates: start: 20120628, end: 20120919
  16. NAUZELIN OD [Concomitant]
     Dosage: 10 MG/DAY, PRN
     Route: 048
     Dates: start: 20120609, end: 20120613
  17. NAUZELIN OD [Concomitant]
     Dosage: 30 MG, QD
     Route: 048
     Dates: start: 20120614, end: 20121114

REACTIONS (1)
  - Retinopathy [Recovered/Resolved]
